FAERS Safety Report 9751814 (Version 4)
Quarter: 2014Q1

REPORT INFORMATION
  Report Type: Report from Study
  Country: US (occurrence: US)
  Receive Date: 20131213
  Receipt Date: 20140115
  Transmission Date: 20141002
  Serious: Yes (Death, Hospitalization)
  Sender: FDA-Public Use
  Company Number: US-ROCHE-1293547

PATIENT
  Age: 57 Year
  Sex: Male

DRUGS (2)
  1. XELODA [Suspect]
     Indication: RECTAL CANCER
     Dosage: DAYS 1-14 THEN 7 DAYS OFF
     Route: 065
  2. XELODA [Suspect]
     Indication: HEPATIC CANCER
     Dosage: 3 TABLETS TWICE A DAY, 14 DAYS ON 7 DAYS OFF
     Route: 065

REACTIONS (3)
  - Rectal cancer [Fatal]
  - Failure to thrive [Recovered/Resolved]
  - Asthenia [Recovered/Resolved]
